FAERS Safety Report 8596975 (Version 3)
Quarter: 2014Q1

REPORT INFORMATION
  Report Type: Spontaneous
  Country: US (occurrence: US)
  Receive Date: 20120605
  Receipt Date: 20140103
  Transmission Date: 20141002
  Serious: Yes (Hospitalization, Disabling)
  Sender: FDA-Public Use
  Company Number: US-ASTRAZENECA-2012SE35693

PATIENT
  Age: 48 Year
  Sex: Female
  Weight: 88.5 kg

DRUGS (47)
  1. NEXIUM [Suspect]
     Indication: GASTROOESOPHAGEAL REFLUX DISEASE
     Route: 048
     Dates: start: 20030715
  2. NEXIUM [Suspect]
     Indication: GASTROOESOPHAGEAL REFLUX DISEASE
     Route: 048
     Dates: start: 20031003
  3. PREVACID [Concomitant]
     Dates: start: 20091005
  4. DEXILANT [Concomitant]
  5. ZANTAC [Concomitant]
  6. PEPCID [Concomitant]
  7. TUMS [Concomitant]
  8. ALKA SELTZER [Concomitant]
  9. GAVISCON [Concomitant]
  10. PEPTO BISMOL [Concomitant]
  11. ROLAIDS [Concomitant]
  12. MYLANTA [Concomitant]
  13. METFORMIN HCL [Concomitant]
  14. PRAVASTATIN [Concomitant]
     Dates: start: 20090811
  15. NORVAS [Concomitant]
     Dates: start: 20090811
  16. LISINOPRIL [Concomitant]
  17. LORTAB [Concomitant]
     Dosage: 10-500 MG
  18. NEURONTIN [Concomitant]
  19. ROBAXIN [Concomitant]
  20. PROZAC [Concomitant]
  21. TRAZODONE [Concomitant]
     Dates: start: 20051118
  22. SYMBICORT [Concomitant]
     Dosage: 160/415
  23. ESTRACE [Concomitant]
  24. DICYCLOMINE [Concomitant]
     Dates: start: 20020811
  25. LODRANE [Concomitant]
     Dates: start: 20020927
  26. PROMETHAZINE [Concomitant]
     Dates: start: 20030331
  27. MEDROXYPR [Concomitant]
     Dates: start: 20030421
  28. PREMARIN [Concomitant]
     Dates: start: 20050109
  29. LISINOPRIL/ HCTZ [Concomitant]
     Dosage: 20 MG/ 12.5
  30. PROTONIX [Concomitant]
  31. MECLIZINE [Concomitant]
  32. NYSTATIN [Concomitant]
     Route: 048
  33. POTASS CHLOR [Concomitant]
  34. PHENAZOPYRID [Concomitant]
  35. ADDERALL XR [Concomitant]
  36. ETODOLAC [Concomitant]
  37. LEXAPRO [Concomitant]
     Dates: start: 20051118
  38. LEXAPRO [Concomitant]
     Dates: start: 20071102
  39. RISPERDAL [Concomitant]
     Dates: start: 20051118
  40. HYOSCYAMINE [Concomitant]
     Dates: start: 20060413
  41. BENZONATATE [Concomitant]
     Dates: start: 20070219
  42. INVEGA [Concomitant]
     Dates: start: 20071102
  43. FUROSEMIDE [Concomitant]
     Dates: start: 20080624
  44. HYDROXYZINE PAM [Concomitant]
  45. PREDNISONE [Concomitant]
     Dates: start: 20080708
  46. SINGULAIR [Concomitant]
     Dates: start: 20080805
  47. OMEPRAZOLE [Concomitant]
     Dates: start: 20090323

REACTIONS (12)
  - Gastrooesophageal reflux disease [Unknown]
  - Musculoskeletal pain [Unknown]
  - Sleep disorder [Unknown]
  - Back disorder [Unknown]
  - Joint injury [Unknown]
  - Depression [Unknown]
  - Osteoporosis [Unknown]
  - Multiple fractures [Unknown]
  - Crohn^s disease [Unknown]
  - Diabetes mellitus [Unknown]
  - Scoliosis [Unknown]
  - Vitamin D deficiency [Unknown]
